FAERS Safety Report 25328388 (Version 1)
Quarter: 2025Q2

REPORT INFORMATION
  Report Type: Spontaneous
  Country: US (occurrence: US)
  Receive Date: 20250518
  Receipt Date: 20250518
  Transmission Date: 20250717
  Serious: No
  Sender: AMGEN
  Company Number: US-AMGEN-USASP2025094139

PATIENT
  Sex: Female

DRUGS (1)
  1. OTEZLA [Suspect]
     Active Substance: APREMILAST
     Indication: Psoriasis
     Route: 065

REACTIONS (6)
  - Drug ineffective [Unknown]
  - Infected cyst [Unknown]
  - Pain [Unknown]
  - Pain in extremity [Unknown]
  - Arthralgia [Unknown]
  - Musculoskeletal stiffness [Unknown]
